FAERS Safety Report 4424394-6 (Version None)
Quarter: 2004Q3

REPORT INFORMATION
  Report Type: 
  Country: None (occurrence: None)
  Receive Date: 20040812
  Receipt Date: 20040804
  Transmission Date: 20050211
  Serious: Yes (Death)
  Sender: FDA-Public Use
  Company Number: GB-JNJFOC-20040801640

PATIENT
  Age: 14 Year
  Sex: Male
  Weight: 54 kg

DRUGS (8)
  1. RISPERDAL [Suspect]
     Route: 049
     Dates: start: 20030821
  2. RISPERDAL [Suspect]
     Indication: ANXIETY
     Route: 049
     Dates: start: 20030821
  3. RISPERDAL [Suspect]
     Indication: AGITATION
     Route: 049
     Dates: start: 20030821
  4. ACETAMINOPHEN [Concomitant]
     Route: 065
  5. DIPROBASE [Concomitant]
     Route: 065
  6. DIPROBASE [Concomitant]
     Route: 065
  7. DIPROBASE [Concomitant]
     Route: 065
  8. DIPROBASE [Concomitant]
     Route: 065

REACTIONS (2)
  - EPILEPSY [None]
  - SUDDEN DEATH [None]
